FAERS Safety Report 5754020-5 (Version None)
Quarter: 2008Q2

REPORT INFORMATION
  Report Type: 
  Country: None (occurrence: None)
  Receive Date: 20080527
  Receipt Date: 20080527
  Transmission Date: 20081010
  Serious: Yes (Other)
  Sender: FDA-Public Use
  Company Number: None

PATIENT
  Sex: Male
  Weight: 72.5755 kg

DRUGS (1)
  1. LEVAQUIN [Suspect]
     Indication: PROSTATITIS
     Dosage: 500MG 1 PER DAY PO
     Route: 048
     Dates: start: 20080505, end: 20080520

REACTIONS (13)
  - ARTHRALGIA [None]
  - ASTHENIA [None]
  - CHEST PAIN [None]
  - DEPRESSION [None]
  - DISTURBANCE IN ATTENTION [None]
  - FEELING ABNORMAL [None]
  - HEART RATE INCREASED [None]
  - HYPERSENSITIVITY [None]
  - MALAISE [None]
  - NEURALGIA [None]
  - PALPITATIONS [None]
  - SOMNOLENCE [None]
  - TENDON PAIN [None]
